FAERS Safety Report 9100814 (Version 2)
Quarter: 2013Q1

REPORT INFORMATION
  Report Type: Spontaneous
  Country: AR (occurrence: AR)
  Receive Date: 20130215
  Receipt Date: 20130314
  Transmission Date: 20140127
  Serious: Yes (Hospitalization)
  Sender: FDA-Public Use
  Company Number: PHHY2013AR011900

PATIENT
  Age: 40 Year
  Sex: Male

DRUGS (2)
  1. EXELON PATCH [Suspect]
     Indication: CHRONIC FATIGUE SYNDROME
     Dosage: 4.5 MG (5 CM), DAILY
     Route: 062
     Dates: start: 201211, end: 20130121
  2. EXELON PATCH [Suspect]
     Dosage: 4.5 MG (5 CM), DAILY
     Route: 062
     Dates: start: 20130129

REACTIONS (4)
  - Cholelithiasis [Not Recovered/Not Resolved]
  - Amnesia [Not Recovered/Not Resolved]
  - Dysarthria [Not Recovered/Not Resolved]
  - Therapeutic response decreased [Not Recovered/Not Resolved]
